FAERS Safety Report 25314139 (Version 1)
Quarter: 2025Q2

REPORT INFORMATION
  Report Type: Spontaneous
  Country: US (occurrence: US)
  Receive Date: 20250514
  Receipt Date: 20250514
  Transmission Date: 20250717
  Serious: No
  Sender: ABBVIE
  Company Number: US-ABBVIE-6274059

PATIENT
  Sex: Female

DRUGS (1)
  1. MILNACIPRAN [Suspect]
     Active Substance: MILNACIPRAN
     Indication: Arthritis
     Route: 048

REACTIONS (1)
  - Pain [Unknown]
